FAERS Safety Report 4935125-5 (Version None)
Quarter: 2006Q1

REPORT INFORMATION
  Report Type: 
  Country: None (occurrence: None)
  Receive Date: 20060306
  Receipt Date: 20060306
  Transmission Date: 20060701
  Serious: Yes (Hospitalization, Disabling)
  Sender: FDA-Public Use
  Company Number: None

PATIENT
  Age: 50 Year
  Sex: Male
  Weight: 74.3899 kg

DRUGS (6)
  1. PENICILLIN [Suspect]
     Indication: ANTIBIOTIC PROPHYLAXIS
     Dosage: 500MG   FOUR TIMES DAILY  PO
     Route: 048
     Dates: start: 20051223, end: 20060101
  2. PENICILLIN [Suspect]
     Indication: DENTAL TREATMENT
     Dosage: 500MG   FOUR TIMES DAILY  PO
     Route: 048
     Dates: start: 20051223, end: 20060101
  3. LEVOTHYROXINE SODIUM [Concomitant]
  4. IBUPROFEN [Concomitant]
  5. ACETAMINOPHEN [Concomitant]
  6. ASPIRIN [Concomitant]

REACTIONS (7)
  - BLOOD CREATINE PHOSPHOKINASE MB INCREASED [None]
  - CHEST PAIN [None]
  - DRUG HYPERSENSITIVITY [None]
  - OEDEMA PERIPHERAL [None]
  - PRURITUS [None]
  - SWELLING FACE [None]
  - URTICARIA [None]
